FAERS Safety Report 9883407 (Version 2)
Quarter: 2014Q2

REPORT INFORMATION
  Report Type: Spontaneous
  Country: US (occurrence: US)
  Receive Date: 20140210
  Receipt Date: 20140403
  Transmission Date: 20141212
  Serious: No
  Sender: FDA-Public Use
  Company Number: US-BIOGENIDEC-2014BI010117

PATIENT
  Age: 64 Year
  Sex: Female

DRUGS (2)
  1. TYSABRI [Suspect]
     Indication: MULTIPLE SCLEROSIS
     Route: 042
     Dates: start: 20100322, end: 20140228
  2. AVONEX [Concomitant]
     Indication: MULTIPLE SCLEROSIS
     Route: 030

REACTIONS (5)
  - Muscular weakness [Recovered/Resolved]
  - Nasopharyngitis [Recovered/Resolved]
  - Multiple sclerosis relapse [Recovered/Resolved]
  - Drug ineffective [Recovered/Resolved]
  - Malaise [Recovered/Resolved]
